FAERS Safety Report 13645493 (Version 3)
Quarter: 2017Q3

REPORT INFORMATION
  Report Type: Report from Study
  Country: CO (occurrence: CO)
  Receive Date: 20170613
  Receipt Date: 20170927
  Transmission Date: 20171127
  Serious: Yes (Hospitalization, Other)
  Sender: FDA-Public Use
  Company Number: CO-ROCHE-1945959

PATIENT
  Age: 57 Year
  Sex: Female
  Weight: 57 kg

DRUGS (1)
  1. BEVACIZUMAB. [Suspect]
     Active Substance: BEVACIZUMAB
     Indication: OVARIAN CANCER
     Route: 042
     Dates: start: 20170411

REACTIONS (13)
  - Abdominal pain [Recovering/Resolving]
  - Headache [Recovered/Resolved]
  - Haematuria [Recovered/Resolved]
  - Dysgeusia [Recovering/Resolving]
  - Dysuria [Recovering/Resolving]
  - Pain in extremity [Recovering/Resolving]
  - Cough [Recovered/Resolved]
  - Feeling hot [Recovering/Resolving]
  - Arthralgia [Recovered/Resolved]
  - Headache [Recovering/Resolving]
  - Bladder injury [Not Recovered/Not Resolved]
  - Vomiting [Recovered/Resolved]
  - Pain [Recovering/Resolving]

NARRATIVE: CASE EVENT DATE: 20170527
